FAERS Safety Report 6666713-6 (Version None)
Quarter: 2010Q2

REPORT INFORMATION
  Report Type: 
  Country: None (occurrence: None)
  Receive Date: 20100402
  Receipt Date: 20100402
  Transmission Date: 20101027
  Serious: Yes (Other)
  Sender: FDA-Public Use
  Company Number: None

PATIENT
  Age: 65 Year
  Sex: Male
  Weight: 82.5547 kg

DRUGS (1)
  1. DORZOLAMIDE [Suspect]
     Indication: GLAUCOMA
     Dosage: 1 DROP BOTH EYES TWICE PER DAY
     Dates: start: 20080101

REACTIONS (4)
  - MEDICATION RESIDUE [None]
  - PRODUCT CONTAINER ISSUE [None]
  - PRODUCT QUALITY ISSUE [None]
  - PRODUCT SUBSTITUTION ISSUE [None]
